FAERS Safety Report 23808696 (Version 1)
Quarter: 2024Q2

REPORT INFORMATION
  Report Type: Spontaneous
  Country: IT (occurrence: IT)
  Receive Date: 20240502
  Receipt Date: 20240502
  Transmission Date: 20240716
  Serious: Yes (Other)
  Sender: FDA-Public Use
  Company Number: None

PATIENT
  Age: 51 Year
  Sex: Female
  Weight: 61 kg

DRUGS (4)
  1. PACLITAXEL [Suspect]
     Active Substance: PACLITAXEL
     Indication: Breast cancer
     Dosage: DOSAGE TEXT: 11TH CYCLE/1ST DAY PACLITAXEL TEVA* 50ML 6MG/ML; ADMINISTERED DOSE: 120 MG I.V. IN 1...
     Route: 065
  2. METOCLOPRAMIDE [Concomitant]
     Active Substance: METOCLOPRAMIDE
     Indication: Nausea
     Dosage: METOCLOPRAMIDE (PA) ADMINISTERED 10 MG - 1 TIME PER WEEK FOR CHEMOTHERAPY: WEEKLY PACLITAXEL PROT...
     Route: 042
     Dates: start: 20230612
  3. GRANISETRON [Concomitant]
     Active Substance: GRANISETRON
     Indication: Vomiting
     Dosage: GRANISETRON (PA) ADMINISTERED 3 MG ONCE A WEEK FOR CHEMOTHERAPY: WEEKLY PACLITAXEL PROTOCOL
     Route: 042
     Dates: start: 20230612
  4. DEXAMETHASONE [Concomitant]
     Active Substance: DEXAMETHASONE
     Indication: Steroid therapy
     Dosage: DEXAMETHASONE (PA) ADMINISTERED 8 MG - 1 TIME PER WEEK FOR CHEMOTHERAPY: WEEKLY PACLITAXEL PROTOCOL
     Route: 042
     Dates: start: 20230612

REACTIONS (3)
  - Neuropathy peripheral [Recovered/Resolved]
  - Paraesthesia [Recovered/Resolved]
  - Asthenia [Recovered/Resolved]

NARRATIVE: CASE EVENT DATE: 20230823
